FAERS Safety Report 4924958-7 (Version None)
Quarter: 2006Q1

REPORT INFORMATION
  Report Type: 
  Country: None (occurrence: None)
  Receive Date: 20060222
  Receipt Date: 20060208
  Transmission Date: 20060701
  Serious: Yes (Hospitalization)
  Sender: FDA-Public Use
  Company Number: TCI2006A00633

PATIENT
  Age: 69 Year
  Sex: Male

DRUGS (7)
  1. ACTOS [Suspect]
     Indication: DIABETES MELLITUS
     Dosage: 30 MG (30 MG, 1 D)
     Route: 048
     Dates: start: 20050530
  2. NATEGLINIDE [Suspect]
     Indication: DIABETES MELLITUS
     Route: 048
     Dates: start: 20051020
  3. BLOPRESS                 (CANDESARTAN CILEXETIL) [Concomitant]
  4. ATELEC                 (CILNIDIPINE) [Concomitant]
  5. TOWAMIN                     (ATENOLOL) [Concomitant]
  6. DIAZEPAM [Concomitant]
  7. DIART (AZOSEMIDE) [Concomitant]

REACTIONS (7)
  - ALCOHOL POISONING [None]
  - CHEST PAIN [None]
  - INITIAL INSOMNIA [None]
  - MALAISE [None]
  - MUSCULOSKELETAL STIFFNESS [None]
  - THERAPY NON-RESPONDER [None]
  - TREATMENT NONCOMPLIANCE [None]
